FAERS Safety Report 12877576 (Version 1)
Quarter: 2016Q4

REPORT INFORMATION
  Report Type: Spontaneous
  Country: AU (occurrence: AU)
  Receive Date: 20161024
  Receipt Date: 20161024
  Transmission Date: 20170207
  Serious: Yes (Other)
  Sender: FDA-Public Use
  Company Number: PHHY2016AU144067

PATIENT
  Age: 60 Year
  Sex: Female

DRUGS (1)
  1. ROSUZET COMPOSITE PACK [Suspect]
     Active Substance: EZETIMIBE\ROSUVASTATIN
     Indication: BLOOD CHOLESTEROL INCREASED
     Route: 065
     Dates: start: 20161008, end: 20161010

REACTIONS (4)
  - Drug prescribing error [None]
  - Abdominal pain [Unknown]
  - Arthralgia [None]
  - Pain [Unknown]

NARRATIVE: CASE EVENT DATE: 20161008
